FAERS Safety Report 6164246-7 (Version None)
Quarter: 2009Q2

REPORT INFORMATION
  Report Type: 
  Country: None (occurrence: None)
  Receive Date: 20090422
  Receipt Date: 20090415
  Transmission Date: 20091009
  Serious: Yes (Other)
  Sender: FDA-Public Use
  Company Number: BR-ASTRAZENECA-2009UW09751

PATIENT
  Age: 22434 Day
  Sex: Female
  Weight: 57 kg

DRUGS (1)
  1. CRESTOR [Suspect]
     Indication: HYPERCHOLESTEROLAEMIA
     Route: 048
     Dates: start: 20090317, end: 20090326

REACTIONS (3)
  - MALAISE [None]
  - NAUSEA [None]
  - URTICARIA [None]
